FAERS Safety Report 6091466-2 (Version None)
Quarter: 2009Q1

REPORT INFORMATION
  Report Type: 
  Country: None (occurrence: None)
  Receive Date: 20090219
  Receipt Date: 20090219
  Transmission Date: 20090719
  Serious: Yes (Hospitalization)
  Sender: FDA-Public Use
  Company Number: None

PATIENT
  Age: 81 Year
  Sex: Male
  Weight: 78.4723 kg

DRUGS (3)
  1. PHENELZINE [Suspect]
     Indication: JOINT INJURY
     Dates: start: 20081206
  2. PHENELZINE [Suspect]
     Indication: PAIN
     Dates: start: 20081206
  3. PERCOCET [Suspect]

REACTIONS (6)
  - BALANCE DISORDER [None]
  - CONFUSIONAL STATE [None]
  - FALL [None]
  - FEELING HOT [None]
  - RIB FRACTURE [None]
  - SEROTONIN SYNDROME [None]
